FAERS Safety Report 8274069-0 (Version None)
Quarter: 2012Q2

REPORT INFORMATION
  Report Type: 
  Country: None (occurrence: None)
  Receive Date: 20120406
  Receipt Date: 20120406
  Transmission Date: 20120825
  Serious: No
  Sender: FDA-Public Use
  Company Number: None

PATIENT

DRUGS (1)
  1. MEDROL [Suspect]

REACTIONS (10)
  - PANIC ATTACK [None]
  - FLUID INTAKE REDUCED [None]
  - ACTIVITIES OF DAILY LIVING IMPAIRED [None]
  - TACHYPHRENIA [None]
  - HYPOPHAGIA [None]
  - THINKING ABNORMAL [None]
  - FLUSHING [None]
  - IMPAIRED WORK ABILITY [None]
  - SUICIDAL IDEATION [None]
  - DIZZINESS [None]
